FAERS Safety Report 10613782 (Version 1)
Quarter: 2014Q4

REPORT INFORMATION
  Report Type: Spontaneous
  Country: US (occurrence: US)
  Receive Date: 20141128
  Receipt Date: 20141128
  Transmission Date: 20150529
  Serious: Yes (Hospitalization)
  Sender: FDA-Public Use
  Company Number: US-PFIZER INC-2014326306

PATIENT
  Age: 44 Year
  Sex: Female
  Weight: 141 kg

DRUGS (1)
  1. CHANTIX [Suspect]
     Active Substance: VARENICLINE TARTRATE
     Indication: SMOKING CESSATION THERAPY
     Dosage: UNK
     Dates: start: 201009, end: 201009

REACTIONS (3)
  - Blood cholesterol increased [Unknown]
  - Myocardial infarction [Unknown]
  - Arterial occlusive disease [Unknown]
